FAERS Safety Report 4749901-5 (Version None)
Quarter: 2005Q3

REPORT INFORMATION
  Report Type: 
  Country: None (occurrence: None)
  Receive Date: 20050822
  Receipt Date: 20050811
  Transmission Date: 20060218
  Serious: Yes (Death, Hospitalization, Other)
  Sender: FDA-Public Use
  Company Number: 2005-08-0681

PATIENT
  Age: 39 Year
  Sex: Male

DRUGS (1)
  1. TEMODAL [Suspect]
     Indication: MIXED OLIGO-ASTROCYTOMA
     Dates: end: 20030905

REACTIONS (9)
  - CONDITION AGGRAVATED [None]
  - DIABETES MELLITUS [None]
  - GENERAL PHYSICAL CONDITION ABNORMAL [None]
  - INFECTION [None]
  - NEOPLASM PROGRESSION [None]
  - PANCYTOPENIA [None]
  - PYELONEPHRITIS [None]
  - PYREXIA [None]
  - VOMITING [None]
